FAERS Safety Report 9900779 (Version 1)
Quarter: 2014Q1

REPORT INFORMATION
  Report Type: Spontaneous
  Country: JP (occurrence: JP)
  Receive Date: 20140217
  Receipt Date: 20140217
  Transmission Date: 20141002
  Serious: Yes (Other)
  Sender: FDA-Public Use
  Company Number: JP-BAYER-2014-019845

PATIENT
  Sex: Female

DRUGS (1)
  1. YAZ [Suspect]
     Dosage: DAILY DOSE 1 DF
     Route: 048

REACTIONS (2)
  - Thrombophlebitis superficial [None]
  - Skin ulcer [None]
